FAERS Safety Report 6784834-4 (Version None)
Quarter: 2010Q2

REPORT INFORMATION
  Report Type: 
  Country: None (occurrence: None)
  Receive Date: 20100622
  Receipt Date: 20090527
  Transmission Date: 20101027
  Serious: Yes (Death, Other)
  Sender: FDA-Public Use
  Company Number: US-GENZYME-CLOF-1000570

PATIENT
  Age: 16 Year
  Sex: Male
  Weight: 70.1 kg

DRUGS (4)
  1. CLOLAR [Suspect]
     Indication: ACUTE MYELOID LEUKAEMIA
     Dosage: UNK UNK, UNK
     Route: 065
     Dates: start: 20090424
  2. GEMTUZUMAB [Suspect]
     Indication: ACUTE MYELOID LEUKAEMIA
     Dosage: UNK UNK, UNK
     Route: 065
     Dates: start: 20090424
  3. CLADRIBINE [Concomitant]
     Indication: ACUTE MYELOID LEUKAEMIA
     Dosage: 17 MG, UNK
     Route: 065
     Dates: start: 20090409
  4. CYTARABINE [Concomitant]
     Indication: ACUTE MYELOID LEUKAEMIA
     Dosage: 920 MG, UNK
     Route: 065
     Dates: start: 20090409

REACTIONS (4)
  - CAECITIS [None]
  - FUNGAL SEPSIS [None]
  - MULTI-ORGAN FAILURE [None]
  - NEUTROPENIA [None]
